FAERS Safety Report 9790520 (Version 1)
Quarter: 2013Q4

REPORT INFORMATION
  Report Type: Spontaneous
  Country: US (occurrence: US)
  Receive Date: 20131231
  Receipt Date: 20131231
  Transmission Date: 20140711
  Serious: Yes (Other)
  Sender: FDA-Public Use
  Company Number: US-BAXTER-2013BAX036186

PATIENT
  Age: 77 Year
  Sex: Female

DRUGS (2)
  1. HEPARIN SODIUM IN 0.9% SODIUM CHLORIDE INJECTION [Suspect]
     Indication: PRODUCT USED FOR UNKNOWN INDICATION
     Route: 042
  2. HEPARIN SODIUM IN 0.9% SODIUM CHLORIDE INJECTION [Suspect]
     Route: 042

REACTIONS (1)
  - Atrial thrombosis [Recovered/Resolved]
